FAERS Safety Report 15231496 (Version 2)
Quarter: 2018Q3

REPORT INFORMATION
  Report Type: Report from Study
  Country: CA (occurrence: CA)
  Receive Date: 20180802
  Receipt Date: 20180925
  Transmission Date: 20181010
  Serious: Yes (Other)
  Sender: FDA-Public Use
  Company Number: PHHY2017CA190463

PATIENT
  Sex: Male

DRUGS (2)
  1. GLEEVEC [Suspect]
     Active Substance: IMATINIB MESYLATE
     Indication: GASTROINTESTINAL STROMAL TUMOUR
     Dosage: 2 DF, QD
     Route: 048
     Dates: start: 20171104, end: 20180723
  2. GLEEVEC [Suspect]
     Active Substance: IMATINIB MESYLATE
     Dosage: 600 MG, UNK (1 AND HALF TABLET OF 400MG)
     Route: 065

REACTIONS (19)
  - Fatigue [Unknown]
  - Dyspnoea [Unknown]
  - Rash generalised [Unknown]
  - Arthralgia [Unknown]
  - Lacrimation increased [Unknown]
  - Nail avulsion [Unknown]
  - Asthenia [Unknown]
  - Rash pustular [Unknown]
  - Fluid retention [Unknown]
  - Decreased appetite [Unknown]
  - Eye disorder [Unknown]
  - Feeling abnormal [Unknown]
  - Eating disorder [Unknown]
  - Blindness [Unknown]
  - Drug ineffective [Unknown]
  - Fungal infection [Unknown]
  - Hordeolum [Unknown]
  - Nausea [Unknown]
  - Dysgeusia [Unknown]
